FAERS Safety Report 4951712-2 (Version None)
Quarter: 2006Q1

REPORT INFORMATION
  Report Type: 
  Country: None (occurrence: None)
  Receive Date: 20060323
  Receipt Date: 20060209
  Transmission Date: 20060701
  Serious: Yes (Death)
  Sender: FDA-Public Use
  Company Number: UY-GLAXOSMITHKLINE-A0593105A

PATIENT
  Age: 19 Year
  Sex: Female

DRUGS (2)
  1. VENTOLIN [Suspect]
     Route: 055
     Dates: end: 20060203
  2. BRONCHODILATOR [Suspect]
     Route: 065

REACTIONS (2)
  - CARDIO-RESPIRATORY ARREST [None]
  - OVERDOSE [None]
